FAERS Safety Report 6682383-5 (Version None)
Quarter: 2010Q2

REPORT INFORMATION
  Report Type: 
  Country: None (occurrence: None)
  Receive Date: 20100415
  Receipt Date: 20100414
  Transmission Date: 20101027
  Serious: Yes (Hospitalization)
  Sender: FDA-Public Use
  Company Number: US-PFIZER INC-2009168998

PATIENT
  Sex: Male
  Weight: 77.551 kg

DRUGS (6)
  1. BLINDED *NO SUBJECT DRUG [Suspect]
     Indication: HIV INFECTION
     Dosage: UNK
     Route: 048
     Dates: start: 20051025, end: 20060316
  2. BLINDED *PLACEBO [Suspect]
     Indication: HIV INFECTION
     Dosage: UNK
     Route: 048
     Dates: start: 20051025, end: 20060316
  3. BLINDED MARAVIROC [Suspect]
     Indication: HIV INFECTION
     Dosage: UNK
     Route: 048
     Dates: start: 20051025, end: 20060316
  4. CALCIUM WITH VITAMIN D [Concomitant]
     Dosage: UNK
     Route: 048
     Dates: start: 20060901
  5. DARUNAVIR [Concomitant]
     Dosage: UNK
     Route: 048
     Dates: start: 20070529
  6. TESTOSTERONE [Concomitant]
     Dosage: UNK
     Route: 062
     Dates: start: 20061214

REACTIONS (1)
  - SIALOADENITIS [None]
